FAERS Safety Report 23874850 (Version 1)
Quarter: 2024Q2

REPORT INFORMATION
  Report Type: Spontaneous
  Country: EG (occurrence: EG)
  Receive Date: 20240520
  Receipt Date: 20240520
  Transmission Date: 20240716
  Serious: Yes (Hospitalization)
  Sender: FDA-Public Use
  Company Number: EG-SANDOZ-SDZ2024EG049388

PATIENT
  Age: 31 Year
  Sex: Female
  Weight: 72 kg

DRUGS (1)
  1. CEFTRIAXONE [Suspect]
     Active Substance: CEFTRIAXONE\CEFTRIAXONE SODIUM
     Indication: Product used for unknown indication
     Dosage: 1 G
     Route: 042
     Dates: start: 20240410

REACTIONS (8)
  - Musculoskeletal stiffness [Unknown]
  - Dysarthria [Unknown]
  - Feeling cold [Unknown]
  - Chills [Unknown]
  - Dyspnoea [Unknown]
  - Agitation [Unknown]
  - Seizure [Unknown]
  - Pyrexia [Unknown]

NARRATIVE: CASE EVENT DATE: 20240410
